FAERS Safety Report 8599127-2 (Version None)
Quarter: 2012Q3

REPORT INFORMATION
  Report Type: 
  Country: None (occurrence: None)
  Receive Date: 20120816
  Receipt Date: 20120806
  Transmission Date: 20120928
  Serious: No
  Sender: FDA-Public Use
  Company Number: US-ASTRAZENECA-2012SE55389

PATIENT
  Age: 73 Year
  Sex: Female

DRUGS (3)
  1. SYNTHROID [Concomitant]
  2. CRESTOR [Suspect]
     Indication: BLOOD CHOLESTEROL INCREASED
     Route: 048
  3. CRESTOR [Suspect]
     Route: 048

REACTIONS (3)
  - GASTROINTESTINAL SOUNDS ABNORMAL [None]
  - ASTHENIA [None]
  - FREQUENT BOWEL MOVEMENTS [None]
